FAERS Safety Report 6356795-3 (Version None)
Quarter: 2009Q3

REPORT INFORMATION
  Report Type: 
  Country: None (occurrence: None)
  Receive Date: 20090911
  Receipt Date: 20090911
  Transmission Date: 20100115
  Serious: Yes (Hospitalization)
  Sender: FDA-Public Use
  Company Number: None

PATIENT
  Sex: Female
  Weight: 40.8237 kg

DRUGS (5)
  1. CYMBALTA [Suspect]
     Indication: POLYNEUROPATHY
     Dosage: 30MG ONCE/DAY PO
     Route: 048
     Dates: start: 20090819, end: 20090820
  2. CA [Concomitant]
  3. MULTIVITS [Concomitant]
  4. EVISTA [Concomitant]
  5. IBUPROFEN [Concomitant]

REACTIONS (5)
  - BLOOD SODIUM DECREASED [None]
  - HEADACHE [None]
  - HYPERTENSION [None]
  - NAUSEA [None]
  - URINARY RETENTION [None]
